FAERS Safety Report 5572924-3 (Version None)
Quarter: 2007Q4

REPORT INFORMATION
  Report Type: 
  Country: None (occurrence: None)
  Receive Date: 20071224
  Receipt Date: 20071220
  Transmission Date: 20080405
  Serious: Yes (Death, Other)
  Sender: FDA-Public Use
  Company Number: FR-NOVOPROD-270487

PATIENT
  Age: 85 Year
  Sex: Female

DRUGS (4)
  1. NOVOSEVEN [Suspect]
     Indication: HAEMORRHAGE
     Dosage: 2.4 MG, SINGLE
     Route: 042
     Dates: start: 20071013, end: 20071013
  2. KARDEGIC                           /00002703/ [Concomitant]
  3. ACE INHIBITOR NOS [Concomitant]
     Dates: start: 20071016
  4. PROTAMINE SULFATE [Concomitant]
     Indication: HAEMORRHAGE
     Dosage: 3000 IU, UNK
     Route: 042
     Dates: start: 20071012, end: 20071012

REACTIONS (8)
  - ATRIAL FIBRILLATION [None]
  - ATRIOVENTRICULAR BLOCK SECOND DEGREE [None]
  - CARDIO-RESPIRATORY ARREST [None]
  - COMA [None]
  - MYOCLONIC EPILEPSY [None]
  - NERVOUS SYSTEM DISORDER [None]
  - PLEURAL EFFUSION [None]
  - PULMONARY EMBOLISM [None]
